FAERS Safety Report 24791867 (Version 1)
Quarter: 2024Q4

REPORT INFORMATION
  Report Type: Report from Study
  Country: US (occurrence: US)
  Receive Date: 20241231
  Receipt Date: 20241231
  Transmission Date: 20250114
  Serious: Yes (Other)
  Sender: CHATTEM
  Company Number: US-SA-2015SA056324

PATIENT
  Age: 68 Year
  Sex: Female
  Weight: 160 kg

DRUGS (2)
  1. GOLD BOND ULTIMATE PSORIASIS RELIEF CREAM [Suspect]
     Active Substance: SALICYLIC ACID
     Indication: Psoriasis
     Dosage: DOSE DESCRIPTION : UNK UNK,HS
     Route: 065
     Dates: start: 20150329, end: 20150401
  2. DOXYCYCLINE HYCLATE [Concomitant]
     Active Substance: DOXYCYCLINE HYCLATE
     Indication: Product used for unknown indication
     Dosage: DOSE DESCRIPTION : 100 MG,UNK
     Route: 065

REACTIONS (28)
  - Application site reaction [Not Recovered/Not Resolved]
  - Skin fissures [Unknown]
  - Erythema [Unknown]
  - Skin haemorrhage [Unknown]
  - Skin exfoliation [Not Recovered/Not Resolved]
  - Pruritus [Recovered/Resolved]
  - Application site pain [Not Recovered/Not Resolved]
  - Application site discomfort [Unknown]
  - Application site scar [Not Recovered/Not Resolved]
  - Burns third degree [Unknown]
  - Oedema peripheral [Unknown]
  - Skin ulcer [Unknown]
  - Pyrexia [Recovering/Resolving]
  - Chills [Unknown]
  - Pain [Not Recovered/Not Resolved]
  - Insomnia [Unknown]
  - Gait disturbance [Unknown]
  - Tremor [Unknown]
  - Chills [Unknown]
  - Psoriasis [Not Recovered/Not Resolved]
  - Skin exfoliation [Not Recovered/Not Resolved]
  - Sensitive skin [Not Recovered/Not Resolved]
  - Application site burn [Not Recovered/Not Resolved]
  - Dry skin [Not Recovered/Not Resolved]
  - Erythema [Not Recovered/Not Resolved]
  - Feeling hot [Not Recovered/Not Resolved]
  - Pain [Not Recovered/Not Resolved]
  - Inappropriate schedule of product administration [Unknown]

NARRATIVE: CASE EVENT DATE: 20150401
